FAERS Safety Report 14599275 (Version 1)
Quarter: 2018Q1

REPORT INFORMATION
  Report Type: Spontaneous
  Country: GB (occurrence: GB)
  Receive Date: 20180305
  Receipt Date: 20180305
  Transmission Date: 20180509
  Serious: Yes (Death, Hospitalization, Other)
  Sender: FDA-Public Use
  Company Number: GB-TEVA-2018-GB-863967

PATIENT
  Age: 58 Year
  Sex: Male

DRUGS (3)
  1. RITUXIMAB. [Suspect]
     Active Substance: RITUXIMAB
     Indication: CHRONIC LYMPHOCYTIC LEUKAEMIA
     Dosage: 375 MG/ME2; 6 CYCLES
     Route: 065
     Dates: end: 201406
  2. FLUDARABINE [Suspect]
     Active Substance: FLUDARABINE PHOSPHATE
     Indication: CHRONIC LYMPHOCYTIC LEUKAEMIA
     Dosage: 24 MG/ME2; 6 CYCLES
     Route: 065
     Dates: end: 201406
  3. CYCLOPHOSPHAMIDE. [Suspect]
     Active Substance: CYCLOPHOSPHAMIDE
     Indication: CHRONIC LYMPHOCYTIC LEUKAEMIA
     Dosage: 150 MG/ME2; 6 CYCLES
     Route: 065
     Dates: end: 201406

REACTIONS (7)
  - Multiple organ dysfunction syndrome [Fatal]
  - Haemophilus infection [Unknown]
  - Pneumonia adenoviral [Fatal]
  - Adenovirus infection [Fatal]
  - Hypogammaglobulinaemia [Unknown]
  - Lymphopenia [Unknown]
  - Hepatic function abnormal [Fatal]
